FAERS Safety Report 5822732-0 (Version None)
Quarter: 2008Q3

REPORT INFORMATION
  Report Type: 
  Country: None (occurrence: None)
  Receive Date: 20080725
  Receipt Date: 20071015
  Transmission Date: 20090109
  Serious: No
  Sender: FDA-Public Use
  Company Number: US-AMGEN-KDL248405

PATIENT
  Sex: Female
  Weight: 69.9 kg

DRUGS (4)
  1. PROCRIT [Suspect]
     Indication: PRE-EXISTING DISEASE
     Dates: start: 20070901
  2. NEUPOGEN [Concomitant]
     Dates: start: 20060501
  3. UNSPECIFIED MEDICATION [Concomitant]
     Dates: start: 20060301
  4. ALEVE [Concomitant]

REACTIONS (3)
  - ARTHRALGIA [None]
  - MOBILITY DECREASED [None]
  - OEDEMA PERIPHERAL [None]
